FAERS Safety Report 5879868-8 (Version None)
Quarter: 2008Q3

REPORT INFORMATION
  Report Type: 
  Country: None (occurrence: None)
  Receive Date: 20080911
  Receipt Date: 20080911
  Transmission Date: 20090109
  Serious: Yes (Disabling)
  Sender: FDA-Public Use
  Company Number: None

PATIENT
  Sex: Female
  Weight: 52.1637 kg

DRUGS (2)
  1. ALENDRONATE SODIUM [Suspect]
     Indication: OSTEOPOROSIS
     Dosage: 35 MG (LAST 2 YEARS) WEEKLY ORAL
     Route: 048
  2. FOSAMAX [Suspect]
     Dosage: 70 MG (7 YEARS) WEEKLY ORAL
     Route: 048

REACTIONS (3)
  - DECUBITUS ULCER [None]
  - IMPAIRED HEALING [None]
  - OSTEONECROSIS [None]
